FAERS Safety Report 23097711 (Version 1)
Quarter: 2023Q4

REPORT INFORMATION
  Report Type: Spontaneous
  Country: PL (occurrence: PL)
  Receive Date: 20231023
  Receipt Date: 20231023
  Transmission Date: 20240109
  Serious: Yes (Other)
  Sender: FDA-Public Use
  Company Number: PL-MYLANLABS-2023M1111395

PATIENT
  Age: 7 Year
  Sex: Female

DRUGS (4)
  1. ADALIMUMAB [Suspect]
     Active Substance: ADALIMUMAB\ISOPROPYL ALCOHOL
     Indication: Pityriasis rubra pilaris
     Dosage: 40 MILLIGRAM, MONTHLY
     Route: 058
  2. CYCLOSPORINE [Suspect]
     Active Substance: CYCLOSPORINE
     Indication: Pityriasis rubra pilaris
     Dosage: 5 MILLIGRAM/KILOGRAM, QD
     Route: 065
  3. ACITRETIN [Suspect]
     Active Substance: ACITRETIN
     Indication: Pityriasis rubra pilaris
     Dosage: 0.7 MILLIGRAM/KILOGRAM, QD (DISCONTINUED)
     Route: 065
  4. ACITRETIN [Suspect]
     Active Substance: ACITRETIN
     Dosage: UNK (GIVEN ALONG WITH ADALIMUMAB)
     Route: 065

REACTIONS (2)
  - Drug ineffective for unapproved indication [Unknown]
  - Off label use [Unknown]
